FAERS Safety Report 5089003-4 (Version None)
Quarter: 2006Q3

REPORT INFORMATION
  Report Type: 
  Country: None (occurrence: None)
  Receive Date: 20060822
  Receipt Date: 20060801
  Transmission Date: 20061208
  Serious: Yes (Hospitalization)
  Sender: FDA-Public Use
  Company Number: E2020-00357-SPO-US

PATIENT
  Age: 75 Year
  Sex: Male

DRUGS (13)
  1. ARICEPT [Suspect]
     Dosage: 10 MG, 1 IN 1 D, ORAL
     Route: 048
     Dates: start: 20021113
  2. GEODON [Suspect]
     Dosage: 20 MG, 1 IN 1 D, ORAL
     Route: 048
     Dates: start: 20021115
  3. ZOLOFT [Suspect]
     Dosage: SEE IMAGE
     Dates: start: 20021115, end: 20021117
  4. ZOLOFT [Suspect]
     Dosage: SEE IMAGE
     Dates: start: 20021118
  5. LORAZEPAM [Suspect]
     Dosage: 1 MG,
  6. WELLBUTRIN SR [Suspect]
     Dosage: 150 MG, ORAL
     Route: 048
  7. REMERON [Suspect]
     Dosage: 15 MG,
  8. EFFEXOR XR [Suspect]
     Dates: start: 20021113
  9. PLAVIX [Concomitant]
  10. ASPIRIN [Concomitant]
  11. TOPROL-XL [Concomitant]
  12. DIGOXIN [Concomitant]
  13. ZOCOR [Concomitant]

REACTIONS (19)
  - CEREBROVASCULAR ACCIDENT [None]
  - CONSTRICTED AFFECT [None]
  - DEHYDRATION [None]
  - DELUSION [None]
  - DEPRESSED MOOD [None]
  - DYSKINESIA [None]
  - EXTRAPYRAMIDAL DISORDER [None]
  - FACIAL PALSY [None]
  - HYPOTENSION [None]
  - LETHARGY [None]
  - LOSS OF CONSCIOUSNESS [None]
  - NEOLOGISM [None]
  - PARANOIA [None]
  - PERSEVERATION [None]
  - POVERTY OF THOUGHT CONTENT [None]
  - SEDATION [None]
  - SPEECH DISORDER [None]
  - SYNCOPE [None]
  - TREMOR [None]
